FAERS Safety Report 12323490 (Version 2)
Quarter: 2016Q2

REPORT INFORMATION
  Report Type: Report from Study
  Country: BR (occurrence: BR)
  Receive Date: 20160502
  Receipt Date: 20160513
  Transmission Date: 20160815
  Serious: Yes (Other)
  Sender: FDA-Public Use
  Company Number: BR-JNJFOC-20160500107

PATIENT
  Age: 41 Year
  Sex: Female

DRUGS (1)
  1. STELARA [Suspect]
     Active Substance: USTEKINUMAB
     Indication: PSORIASIS
     Route: 058
     Dates: start: 20141223

REACTIONS (3)
  - Bacterial infection [Unknown]
  - Influenza [Recovering/Resolving]
  - Dengue fever [Recovered/Resolved]

NARRATIVE: CASE EVENT DATE: 201602
